FAERS Safety Report 5747495-9 (Version None)
Quarter: 2008Q2

REPORT INFORMATION
  Report Type: 
  Country: None (occurrence: None)
  Receive Date: 20080523
  Receipt Date: 20080514
  Transmission Date: 20081010
  Serious: Yes (Other)
  Sender: FDA-Public Use
  Company Number: US-JNJFOC-20080503154

PATIENT
  Age: 6 Year
  Sex: Female

DRUGS (1)
  1. TOPAMAX [Suspect]
     Indication: EPILEPSY
     Dosage: ONE AND ONE HALF OF A 25 MG TABLET
     Route: 048

REACTIONS (1)
  - OCULOGYRIC CRISIS [None]
